FAERS Safety Report 8887519 (Version 1)
Quarter: 2012Q4

REPORT INFORMATION
  Report Type: Spontaneous
  Country: US (occurrence: None)
  Receive Date: 20121101
  Receipt Date: 20121101
  Transmission Date: 20130627
  Serious: Yes (Hospitalization)
  Sender: FDA-Public Use
  Company Number: None

PATIENT
  Age: 40 Year
  Sex: Female
  Weight: 77.1 kg

DRUGS (4)
  1. MICROGESTIN [Suspect]
     Indication: CONTRACEPTION
     Route: 048
  2. AMITRIPTYLINE [Concomitant]
  3. TOPAMAX [Concomitant]
  4. LEXAPRO [Concomitant]

REACTIONS (9)
  - Syncope [None]
  - Pulmonary embolism [None]
  - Myocardial strain [None]
  - Haemoglobin decreased [None]
  - Haematocrit decreased [None]
  - Contusion [None]
  - Contusion [None]
  - Contusion [None]
  - International normalised ratio abnormal [None]
